FAERS Safety Report 17640476 (Version 2)
Quarter: 2020Q2

REPORT INFORMATION
  Report Type: Spontaneous
  Country: US (occurrence: US)
  Receive Date: 20200408
  Receipt Date: 20200420
  Transmission Date: 20200713
  Serious: Yes (Death, Hospitalization)
  Sender: FDA-Public Use
  Company Number: US-TEVA-2020-US-1218244

PATIENT
  Age: 15 Month
  Sex: Female
  Weight: 9.8 kg

DRUGS (3)
  1. NITRIC OXIDE. [Suspect]
     Active Substance: NITRIC OXIDE
     Route: 055
  2. METHYLPREDNISOLONE. [Suspect]
     Active Substance: METHYLPREDNISOLONE
     Indication: PNEUMONITIS
     Dosage: 1.5 MG/KG PER DAY UP TO 6 MG/KG PER DAY
     Route: 065
  3. BLEOMYCIN [Suspect]
     Active Substance: BLEOMYCIN SULFATE
     Indication: VASCULAR MALFORMATION
     Dosage: 7 UNITS (1 MG/ML) SCLEROTHERAPY
     Route: 026

REACTIONS (8)
  - Respiratory distress [Fatal]
  - Pulmonary haemorrhage [Fatal]
  - Respiratory failure [Fatal]
  - Pneumothorax [Fatal]
  - Pneumonitis [Fatal]
  - Pulmonary toxicity [Fatal]
  - Pneumomediastinum [Fatal]
  - Drug ineffective [Unknown]
